FAERS Safety Report 4801393-3 (Version None)
Quarter: 2005Q4

REPORT INFORMATION
  Report Type: 
  Country: None (occurrence: None)
  Receive Date: 20051018
  Receipt Date: 20050318
  Transmission Date: 20060501
  Serious: Yes (Other)
  Sender: FDA-Public Use
  Company Number: CH-SOLVAY-00305000885

PATIENT
  Age: 53 Year
  Sex: Male

DRUGS (2)
  1. CONVULEX [Concomitant]
     Indication: EPILEPSY
     Dosage: DAILY DOSE: 500 MILLIGRAM(S)
     Route: 048
     Dates: start: 20040701
  2. FLUVOXAMINE MALEATE [Suspect]
     Indication: DEPRESSION
     Dosage: DAILY DOSE: 50 MILLIGRAM(S)
     Route: 048
     Dates: start: 20050304, end: 20050310

REACTIONS (2)
  - COMPLEX PARTIAL SEIZURES [None]
  - CONDITION AGGRAVATED [None]
